FAERS Safety Report 8443941-0 (Version None)
Quarter: 2012Q2

REPORT INFORMATION
  Report Type: 
  Country: None (occurrence: None)
  Receive Date: 20120618
  Receipt Date: 20120605
  Transmission Date: 20120825
  Serious: Yes (Other)
  Sender: FDA-Public Use
  Company Number: PHHY2012PL048347

PATIENT
  Age: 84 Year
  Sex: Female

DRUGS (3)
  1. VITAMIN B-12 [Concomitant]
  2. MILOGRIN [Concomitant]
     Dosage: UNK UKN, UNK
  3. EXELON [Suspect]
     Dosage: 4.6 MG, UNK
     Route: 062
     Dates: start: 20111101

REACTIONS (5)
  - DIZZINESS [None]
  - PRESYNCOPE [None]
  - JOINT DISLOCATION [None]
  - FALL [None]
  - LIMB INJURY [None]
